FAERS Safety Report 6644918-8 (Version None)
Quarter: 2010Q1

REPORT INFORMATION
  Report Type: 
  Country: None (occurrence: None)
  Receive Date: 20100322
  Receipt Date: 20100309
  Transmission Date: 20100710
  Serious: Yes (Hospitalization, Disabling, Other)
  Sender: FDA-Public Use
  Company Number: PHHY2009PL19194

PATIENT
  Sex: Female
  Weight: 106 kg

DRUGS (4)
  1. ZOMETA [Suspect]
     Indication: OSTEOPOROSIS
     Dosage: 4 MG
     Route: 042
     Dates: start: 20080806, end: 20080806
  2. VENESCIN [Concomitant]
     Dosage: 4X1
  3. AESCIN [Concomitant]
     Dosage: 4X1
  4. DIPROPHOS [Concomitant]
     Dosage: UNK

REACTIONS (32)
  - ACTIVITIES OF DAILY LIVING IMPAIRED [None]
  - ARTHRALGIA [None]
  - ASTHENIA [None]
  - BEDRIDDEN [None]
  - BLOOD POTASSIUM DECREASED [None]
  - BONE GRAFT [None]
  - DECREASED APPETITE [None]
  - DEFAECATION URGENCY [None]
  - DEPRESSION [None]
  - DYSGEUSIA [None]
  - DYSPEPSIA [None]
  - FAECAL INCONTINENCE [None]
  - FEELING ABNORMAL [None]
  - FEMUR FRACTURE [None]
  - GAIT DISTURBANCE [None]
  - HAEMATOCRIT DECREASED [None]
  - HAEMOGLOBIN DECREASED [None]
  - HEART RATE INCREASED [None]
  - HIP ARTHROPLASTY [None]
  - JOINT DESTRUCTION [None]
  - LASER THERAPY [None]
  - MICTURITION URGENCY [None]
  - MOTOR NEURONE DISEASE [None]
  - MUSCLE SPASMS [None]
  - MYALGIA [None]
  - OSTEOARTHRITIS [None]
  - OSTEONECROSIS [None]
  - PHYSICAL DISABILITY [None]
  - PHYSIOTHERAPY [None]
  - RED BLOOD CELL COUNT DECREASED [None]
  - URINARY INCONTINENCE [None]
  - WALKING AID USER [None]
